FAERS Safety Report 4718187-X (Version None)
Quarter: 2005Q3

REPORT INFORMATION
  Report Type: 
  Country: None (occurrence: None)
  Receive Date: 20050718
  Receipt Date: 20050718
  Transmission Date: 20060218
  Serious: No
  Sender: FDA-Public Use
  Company Number: None

PATIENT
  Sex: Male
  Weight: 9.31 kg

DRUGS (1)
  1. LINEZOLID 100 MG /50 ML IV [Suspect]
     Indication: BACTERIAL INFECTION
     Dosage: 100 MG /50 ML IV Q 8 HR
     Route: 042
     Dates: start: 20050706, end: 20050710

REACTIONS (3)
  - ALANINE AMINOTRANSFERASE INCREASED [None]
  - ASPARTATE AMINOTRANSFERASE INCREASED [None]
  - HEPATOTOXICITY [None]
